FAERS Safety Report 6485190-1 (Version None)
Quarter: 2009Q4

REPORT INFORMATION
  Report Type: 
  Country: None (occurrence: None)
  Receive Date: 20091203
  Receipt Date: 20091123
  Transmission Date: 20100525
  Serious: Yes (Death, Other)
  Sender: FDA-Public Use
  Company Number: JHP200900356

PATIENT
  Age: 34 Year
  Sex: Female

DRUGS (8)
  1. COLY-MYCIN M [Suspect]
     Indication: BACTERIAL INFECTION
     Dosage: 150 MG, TID, INTRAVENOUS; 150 MG, BID, INTRAVENOUS; 150 MG, QD, INTRAVENOUS
     Route: 042
  2. COLY-MYCIN M [Suspect]
     Indication: MULTIPLE-DRUG RESISTANCE
     Dosage: 150 MG, TID, INTRAVENOUS; 150 MG, BID, INTRAVENOUS; 150 MG, QD, INTRAVENOUS
     Route: 042
  3. COLY-MYCIN M [Suspect]
     Indication: BACTERIAL INFECTION
     Dosage: 150 MG, TID, INTRAVENOUS; 150 MG, BID, INTRAVENOUS; 150 MG, QD, INTRAVENOUS
     Route: 042
  4. COLY-MYCIN M [Suspect]
     Indication: MULTIPLE-DRUG RESISTANCE
     Dosage: 150 MG, TID, INTRAVENOUS; 150 MG, BID, INTRAVENOUS; 150 MG, QD, INTRAVENOUS
     Route: 042
  5. COLY-MYCIN M [Suspect]
     Indication: BACTERIAL INFECTION
     Dosage: 150 MG, TID, INTRAVENOUS; 150 MG, BID, INTRAVENOUS; 150 MG, QD, INTRAVENOUS
     Route: 042
  6. COLY-MYCIN M [Suspect]
     Indication: MULTIPLE-DRUG RESISTANCE
     Dosage: 150 MG, TID, INTRAVENOUS; 150 MG, BID, INTRAVENOUS; 150 MG, QD, INTRAVENOUS
     Route: 042
  7. ANTIBIOTICS [Concomitant]
  8. DIURETICS [Concomitant]

REACTIONS (2)
  - NEPHROPATHY TOXIC [None]
  - PNEUMONIA CYTOMEGALOVIRAL [None]
